FAERS Safety Report 4355975-6 (Version None)
Quarter: 2004Q2

REPORT INFORMATION
  Report Type: 
  Country: None (occurrence: None)
  Receive Date: 20040507
  Receipt Date: 20040507
  Transmission Date: 20050107
  Serious: Yes (Hospitalization)
  Sender: FDA-Public Use
  Company Number: None

PATIENT
  Age: 59 Year
  Sex: Female
  Weight: 101.6057 kg

DRUGS (2)
  1. CYTOXAN [Suspect]
     Indication: LYMPHOMA
     Dosage: 100 MG/KG
     Dates: start: 20040228
  2. ETOPOSIDE [Suspect]
     Indication: LYMPHOMA
     Dosage: 60 MG/KG
     Dates: start: 20040226

REACTIONS (2)
  - DYSPNOEA [None]
  - HYPOXIA [None]
